FAERS Safety Report 22024101 (Version 2)
Quarter: 2023Q2

REPORT INFORMATION
  Report Type: Report from Study
  Country: US (occurrence: US)
  Receive Date: 20230223
  Receipt Date: 20230618
  Transmission Date: 20230721
  Serious: Yes (Death)
  Sender: FDA-Public Use
  Company Number: US-ARGENX-2023-ARGX-US000545

PATIENT
  Age: 74 Year
  Sex: Female

DRUGS (1)
  1. VYVGART [Suspect]
     Active Substance: EFGARTIGIMOD ALFA-FCAB
     Indication: Myasthenia gravis
     Dosage: 400 MG
     Route: 042
     Dates: start: 202210

REACTIONS (1)
  - Death [Fatal]

NARRATIVE: CASE EVENT DATE: 20230103
